FAERS Safety Report 22265839 (Version 1)
Quarter: 2023Q2

REPORT INFORMATION
  Report Type: Spontaneous
  Country: US (occurrence: US)
  Receive Date: 20230428
  Receipt Date: 20230428
  Transmission Date: 20230721
  Serious: No
  Sender: FDA-Public Use
  Company Number: US-TEVA-2023-US-2877756

PATIENT
  Age: 69 Year
  Sex: Female

DRUGS (3)
  1. MESALAMINE [Suspect]
     Active Substance: MESALAMINE
     Indication: Colitis microscopic
     Dosage: 4 DOSAGE FORMS DAILY; FOR 2 MONTHS
     Route: 048
     Dates: start: 2023
  2. DEVICE [Suspect]
     Active Substance: DEVICE
     Indication: Uterine prolapse
     Route: 067
  3. DEVICE [Suspect]
     Active Substance: DEVICE
     Indication: Cystocele

REACTIONS (3)
  - Product use in unapproved indication [Unknown]
  - Chromaturia [Not Recovered/Not Resolved]
  - Incorrect dose administered [Unknown]

NARRATIVE: CASE EVENT DATE: 20230101
